FAERS Safety Report 9714825 (Version 1)
Quarter: 2013Q4

REPORT INFORMATION
  Report Type: Spontaneous
  Country: PT (occurrence: PT)
  Receive Date: 20131126
  Receipt Date: 20131126
  Transmission Date: 20140711
  Serious: Yes (Other)
  Sender: FDA-Public Use
  Company Number: PT-B.I. PHARMACEUTICALS,INC./RIDGEFIELD-2013-BI-39097PO

PATIENT
  Age: 68 Year
  Sex: Male

DRUGS (3)
  1. TWYNSTA [Suspect]
     Indication: HYPERTENSION
     Dosage: STRENGTH: 80MG+5MG
     Route: 048
  2. ORAL DRUG FOR DIABETES [Concomitant]
     Indication: DIABETES MELLITUS
  3. ANTIPLATELET DRUG [Concomitant]

REACTIONS (1)
  - Hypertensive crisis [Recovered/Resolved]
